FAERS Safety Report 14180409 (Version 3)
Quarter: 2018Q2

REPORT INFORMATION
  Report Type: Spontaneous
  Country: GB (occurrence: GB)
  Receive Date: 20171111
  Receipt Date: 20180622
  Transmission Date: 20180711
  Serious: Yes (Death, Hospitalization, Disabling, Other)
  Sender: FDA-Public Use
  Company Number: GB-TEVA-822083ACC

PATIENT
  Age: 81 Year
  Sex: Male
  Weight: 59 kg

DRUGS (96)
  1. GLICLAZIDE [Concomitant]
     Active Substance: GLICLAZIDE
     Dosage: 160 MILLIGRAM DAILY;
     Route: 048
  2. DOXAZOSIN [Concomitant]
     Active Substance: DOXAZOSIN\DOXAZOSIN MESYLATE
     Dosage: 2 MILLIGRAM DAILY;
  3. LORAZEPAM. [Concomitant]
     Active Substance: LORAZEPAM
     Dosage: .5 MILLIGRAM DAILY;
     Route: 042
  4. CHLORHEXIDINE GLUCONATE. [Concomitant]
     Active Substance: CHLORHEXIDINE GLUCONATE
     Dosage: 4 DOSAGE FORMS DAILY; BRUSH ONTO TEETH AND GUMS
  5. CHLORPHENAMINE [Concomitant]
     Active Substance: CHLORPHENIRAMINE MALEATE
     Indication: PRURITUS
     Dosage: EVERY 4-6 HOURS, AS REQUIRED
  6. PREDNISOLONE. [Concomitant]
     Active Substance: PREDNISOLONE
     Dosage: 30 MILLIGRAM DAILY;
     Route: 048
  7. OMEPRAZOLE. [Concomitant]
     Active Substance: OMEPRAZOLE
     Dosage: 20 MILLIGRAM DAILY;
     Route: 048
  8. DERMOL [Concomitant]
     Active Substance: BENZALKONIUM CHLORIDE\CHLORHEXIDINE HYDROCHLORIDE\ISOPROPYL MYRISTATE\PARAFFIN
     Dosage: 1 DOSAGE FORMS DAILY;
     Route: 061
  9. ISOSORBIDE MONONITRATE. [Concomitant]
     Active Substance: ISOSORBIDE MONONITRATE
     Dosage: 40 MILLIGRAM DAILY; 8AM AND 2PM.
     Route: 048
  10. POTASSIUM [Concomitant]
     Active Substance: POTASSIUM
     Dosage: 20MML EVERY HOUR, AS REQUIRED
     Route: 042
  11. LORATADINE. [Concomitant]
     Active Substance: LORATADINE
  12. BISOPROLOL [Concomitant]
     Active Substance: BISOPROLOL
     Dosage: 5 MILLIGRAM DAILY;
     Route: 048
  13. ISOSORBIDE. [Concomitant]
     Active Substance: ISOSORBIDE
  14. LORATADINE. [Concomitant]
     Active Substance: LORATADINE
     Dosage: 10 MILLIGRAM DAILY;
     Route: 048
  15. PARACETAMOL [Concomitant]
     Active Substance: ACETAMINOPHEN
     Dosage: TAKE 1-2 FOUR TIMES DAILY
     Route: 048
  16. NUTRITIONAL SUPPLEMENT [Concomitant]
     Active Substance: DIETARY SUPPLEMENT
     Dosage: 3 DOSAGE FORMS DAILY; 49ML PER HOUR. VIA FEEDING TUBE
  17. TINZAPARIN [Concomitant]
     Active Substance: TINZAPARIN
     Dosage: 4500 IU (INTERNATIONAL UNIT) DAILY;
     Route: 058
  18. CO-AMOXICLAV [Concomitant]
     Active Substance: AMOXICILLIN\CLAVULANIC ACID
     Indication: PNEUMONIA
     Dosage: 1.2 GRAM DAILY;
     Route: 042
  19. SANDO-K [Concomitant]
     Active Substance: POTASSIUM BICARBONATE\POTASSIUM CHLORIDE
     Dosage: 4 DOSAGE FORMS DAILY; DISSOLVE TABLETS IN WATER
  20. EMULSIFYING WAX [Concomitant]
  21. DOCUSATE [Concomitant]
     Active Substance: DOCUSATE
  22. GABAPENTIN. [Concomitant]
     Active Substance: GABAPENTIN
     Dosage: 900 MILLIGRAM DAILY; 250MG/5ML
     Route: 048
  23. TRANEXAMIC ACID. [Concomitant]
     Active Substance: TRANEXAMIC ACID
     Dosage: 1000 MILLIGRAM DAILY;
     Route: 042
  24. FUROSEMIDE. [Concomitant]
     Active Substance: FUROSEMIDE
     Dosage: 20 MILLIGRAM DAILY; MORNING.
     Route: 048
  25. CLARITHROMYCIN. [Concomitant]
     Active Substance: CLARITHROMYCIN
     Indication: PNEUMONIA
     Dosage: 500 MILLIGRAM DAILY;
     Route: 042
  26. LORAZEPAM. [Concomitant]
     Active Substance: LORAZEPAM
     Dosage: 1 DOSAGE FORMS DAILY;
     Route: 048
  27. SEEBRI BREEZHALER [Concomitant]
     Active Substance: GLYCOPYRROLATE
     Dosage: 44 MICROGRAM DAILY;
     Route: 055
  28. MOVICOL [Concomitant]
     Active Substance: POLYETHYLENE GLYCOL 3350\POTASSIUM CHLORIDE\SODIUM BICARBONATE\SODIUM CHLORIDE
     Dosage: 2 DOSAGE FORMS DAILY;
     Route: 048
  29. FERSAMAL [Concomitant]
     Active Substance: FERROUS FUMARATE
     Dosage: 420 MILLIGRAM DAILY;
  30. COLECALCIFEROL [Concomitant]
     Active Substance: CHOLECALCIFEROL
     Route: 048
  31. FERROUS SULFATE. [Concomitant]
     Active Substance: FERROUS SULFATE
     Dosage: 200 MILLIGRAM DAILY;
     Route: 048
  32. EPADERM [Concomitant]
     Active Substance: MINERAL OIL\PETROLATUM\WAX, EMULSIFYING
  33. TRAZODONE [Suspect]
     Active Substance: TRAZODONE HYDROCHLORIDE
     Indication: DELIRIUM
     Route: 048
     Dates: start: 201705
  34. TRAZODONE [Suspect]
     Active Substance: TRAZODONE HYDROCHLORIDE
     Indication: DELIRIUM
     Dosage: 50 MILLIGRAM DAILY;
     Route: 048
  35. PHOSPHATE SANDOZ EFFERVESCENT [Concomitant]
  36. SIMVASTATIN. [Concomitant]
     Active Substance: SIMVASTATIN
     Dosage: 40 MILLIGRAM DAILY; NIGHT
     Route: 048
  37. AQUEOUS CREAM [Concomitant]
     Indication: PRURITUS
     Dosage: AS REQUIRED,
     Route: 061
  38. HYDROXYZINE [Concomitant]
     Active Substance: HYDROXYZINE HYDROCHLORIDE
     Dosage: 25 MILLIGRAM DAILY;
     Route: 048
  39. E45 [Concomitant]
     Active Substance: LANOLIN\LIGHT MINERAL OIL\PARAFFIN
     Indication: PRURITUS
     Dosage: AS REQUIRED
     Route: 061
  40. ELOCON [Concomitant]
     Active Substance: MOMETASONE FUROATE
     Dosage: 1 DOSAGE FORMS DAILY;
     Route: 061
  41. PARACETAMOL [Concomitant]
     Active Substance: ACETAMINOPHEN
     Dosage: 0.5-1G VIA ORAL/IV INFUSION/RECTAL
  42. MOVICOL [Concomitant]
     Active Substance: POLYETHYLENE GLYCOL 3350\POTASSIUM CHLORIDE\SODIUM BICARBONATE\SODIUM CHLORIDE
     Dosage: 3 DOSAGE FORMS DAILY;
     Route: 048
  43. OLANZAPINE. [Concomitant]
     Active Substance: OLANZAPINE
     Dosage: 2.5 MILLIGRAM DAILY;
  44. SALBUTAMOL [Concomitant]
     Active Substance: ALBUTEROL
     Dosage: 5MG/2.5ML. ONE DOSE.
  45. SALBUTAMOL [Concomitant]
     Active Substance: ALBUTEROL
     Dosage: 600 MICROGRAM DAILY;
     Route: 055
  46. ZOPICLON [Concomitant]
     Active Substance: ZOPICLONE
  47. ALFENTANIL. [Concomitant]
     Active Substance: ALFENTANIL
     Dosage: 25/50ML. 0-3ML PER HOUR
     Route: 042
  48. ZOPICLONE [Concomitant]
     Active Substance: ZOPICLONE
     Dosage: 7.5 MILLIGRAM DAILY; NIGHT. FOR 3 NIGHTS.
     Route: 048
  49. ACETYLSALICYLIC ACID [Concomitant]
     Active Substance: ASPIRIN
     Dosage: 75 MILLIGRAM DAILY;
     Route: 048
  50. BONJELA [Concomitant]
     Active Substance: CETALKONIUM CHLORIDE\CHOLINE SALICYLATE\MENTHOL
     Indication: MOUTH ULCERATION
     Dosage: AS REQUIRED
  51. FORTISIP [Concomitant]
     Active Substance: CARBOHYDRATES\FATTY ACIDS\MINERALS\PROTEIN\VITAMINS
     Dosage: 1 DOSAGE FORMS DAILY; 1 BOTTLE
     Route: 048
  52. PREGABALIN. [Concomitant]
     Active Substance: PREGABALIN
     Dosage: 100 MILLIGRAM DAILY;
  53. INSULIN [Concomitant]
     Active Substance: INSULIN NOS
     Dosage: 1UNIT PER ML, 0-10ML PER HOUR
     Route: 042
  54. CASSIA [Concomitant]
  55. DOCUSATE SODIUM. [Concomitant]
     Active Substance: DOCUSATE SODIUM
     Dosage: VIA FEEDING TUBE
     Route: 048
  56. SODIUM CHLORIDE. [Concomitant]
     Active Substance: SODIUM CHLORIDE
  57. BISOPROLOL [Concomitant]
     Active Substance: BISOPROLOL
     Dosage: 1.25 MILLIGRAM DAILY;
     Route: 048
  58. COLECALCIFEROL [Concomitant]
     Active Substance: CHOLECALCIFEROL
     Dosage: FRIDAY 8AM
     Route: 048
  59. METFORMIN [Concomitant]
     Active Substance: METFORMIN HYDROCHLORIDE
     Dosage: 1980 MILLIGRAM DAILY;
     Route: 048
  60. MENTHOL. [Concomitant]
     Active Substance: MENTHOL
  61. TRAZODONE [Concomitant]
     Active Substance: TRAZODONE HYDROCHLORIDE
     Dosage: 25 MILLIGRAM DAILY;
     Route: 048
  62. ZOPICLONE [Concomitant]
     Active Substance: ZOPICLONE
     Indication: INSOMNIA
     Dosage: 3.75 MILLIGRAM DAILY; AS REQUIRED.
     Route: 048
  63. AMITRIPTYLINE [Concomitant]
     Active Substance: AMITRIPTYLINE
     Dosage: 10 MILLIGRAM DAILY;
     Route: 048
  64. NOREPINEPHRINE. [Concomitant]
     Active Substance: NOREPINEPHRINE
     Dosage: 4MG/50ML, 0-8ML PER HOUR
     Route: 042
  65. CALAMINE [Concomitant]
     Active Substance: CALAMINE\FERRIC OXIDE RED\ZINC OXIDE
     Indication: PRURITUS
     Dosage: AS REQUIRED
     Route: 061
  66. AMOXICILLIN. [Concomitant]
     Active Substance: AMOXICILLIN
     Dosage: 1500 MILLIGRAM DAILY; FOR 5 DAYS.
  67. DIGOXIN. [Concomitant]
     Active Substance: DIGOXIN
     Dosage: 125 MICROGRAM DAILY; MORNING
     Route: 048
  68. METFORMIN [Concomitant]
     Active Substance: METFORMIN HYDROCHLORIDE
     Dosage: 2000 MILLIGRAM DAILY;
     Route: 048
  69. SIMVASTATIN. [Concomitant]
     Active Substance: SIMVASTATIN
     Dosage: 80 MILLIGRAM DAILY;
     Route: 048
  70. COSMOFER [Concomitant]
     Active Substance: IRON DEXTRAN
     Dosage: 1000 MILLIGRAM DAILY;
     Route: 042
  71. HYDROCORTISONE SODIUM SUCCINATE [Concomitant]
     Active Substance: HYDROCORTISONE SODIUM SUCCINATE
     Indication: DYSPNOEA
     Dosage: 300 MILLIGRAM DAILY;
     Route: 042
  72. GENTAMICIN. [Concomitant]
     Active Substance: GENTAMICIN
     Indication: SEPSIS
     Dosage: 360 MILLIGRAM DAILY; SLOW INJECTION
     Route: 042
  73. PRONTODERM [Concomitant]
     Dosage: 1 DOSAGE FORMS DAILY; FOAM
     Route: 061
  74. FOLIC ACID. [Concomitant]
     Active Substance: FOLIC ACID
  75. PREGABALIN. [Concomitant]
     Active Substance: PREGABALIN
     Dosage: 25 MILLIGRAM DAILY; TEATIME
  76. MAGNASPARTATE [Concomitant]
     Dosage: 2 DOSAGE FORMS DAILY; DISSOLVE 1 SACHET IN 20ML WATER
  77. OXYGEN. [Concomitant]
     Active Substance: OXYGEN
     Indication: HYPOXIA
     Route: 055
  78. TAMSULOSIN [Concomitant]
     Active Substance: TAMSULOSIN
     Dosage: 400 MICROGRAM DAILY;
     Route: 048
  79. FLEET READY TO USE ENEMA [Concomitant]
     Indication: CONSTIPATION
     Dosage: AS REQUIRED
     Route: 054
  80. PIOGLITAZONE. [Concomitant]
     Active Substance: PIOGLITAZONE
     Dosage: 45 MILLIGRAM DAILY;
     Route: 048
  81. PERINDOPRIL [Concomitant]
     Active Substance: PERINDOPRIL
     Dosage: 2 MILLIGRAM DAILY;
     Route: 048
  82. HALOPERIDOL. [Concomitant]
     Active Substance: HALOPERIDOL
     Indication: AGITATION
     Dosage: .5 MILLIGRAM DAILY; AS REQUIRED.
     Route: 048
  83. CETIRIZINE [Concomitant]
     Active Substance: CETIRIZINE HYDROCHLORIDE
     Dosage: 10 MILLIGRAM DAILY;
     Route: 048
  84. IPRATROPIUM [Concomitant]
     Active Substance: IPRATROPIUM
     Indication: DYSPNOEA
     Dosage: 6-10 PUFFS, AS REQUIRED
     Route: 055
  85. MENTHOL. [Concomitant]
     Active Substance: MENTHOL
  86. APIXABAN [Concomitant]
     Active Substance: APIXABAN
     Indication: ANTICOAGULANT THERAPY
     Dosage: 10 MILLIGRAM DAILY;
     Route: 048
  87. NUTRITIONAL SUPPLEMENT [Concomitant]
     Active Substance: DIETARY SUPPLEMENT
     Dosage: 1 BOTTLE
     Route: 048
  88. PROPOFOL. [Concomitant]
     Active Substance: PROPOFOL
     Dosage: 500MG/50ML, 0-20ML PER HOUR
     Route: 042
  89. ISOSORBIDE MONONITRATE. [Concomitant]
     Active Substance: ISOSORBIDE MONONITRATE
     Dosage: 60 MILLIGRAM DAILY;
     Route: 048
  90. MOMETASONE [Concomitant]
     Active Substance: MOMETASONE
     Dosage: COVER WHOLE BODY EXCEPT HEAD AND NECK AT NIGHT.
     Route: 061
  91. BECLOMETASONE [Concomitant]
     Active Substance: BECLOMETHASONE DIPROPIONATE
     Dosage: 2 DOSAGE FORMS DAILY;
  92. FERROUS FUMARATE [Concomitant]
     Active Substance: FERROUS FUMARATE
     Route: 048
  93. FOLIC ACID. [Concomitant]
     Active Substance: FOLIC ACID
  94. RISPERIDONE. [Concomitant]
     Active Substance: RISPERIDONE
     Indication: AGITATION
     Dosage: 1 MILLIGRAM DAILY;
     Route: 048
  95. FUROSEMIDE. [Concomitant]
     Active Substance: FUROSEMIDE
     Dosage: 40 MILLIGRAM DAILY;
     Route: 042
  96. AMIODARONE [Concomitant]
     Active Substance: AMIODARONE
     Dosage: 7200 MILLIGRAM DAILY; 300MG PER 50ML.
     Route: 042

REACTIONS (8)
  - Paraesthesia [Fatal]
  - Death [Fatal]
  - Formication [Fatal]
  - Pulmonary oedema [Fatal]
  - Pruritus [Fatal]
  - Pneumonia [Fatal]
  - Oxygen saturation decreased [Fatal]
  - Rash erythematous [Fatal]

NARRATIVE: CASE EVENT DATE: 20170601
